FAERS Safety Report 8518149-0 (Version None)
Quarter: 2012Q3

REPORT INFORMATION
  Report Type: 
  Country: None (occurrence: None)
  Receive Date: 20120718
  Receipt Date: 20111018
  Transmission Date: 20120928
  Serious: No
  Sender: FDA-Public Use
  Company Number: US-BRISTOL-MYERS SQUIBB COMPANY-16139552

PATIENT
  Age: 22 Year
  Sex: Male

DRUGS (1)
  1. COUMADIN [Suspect]
     Dates: start: 20110817

REACTIONS (2)
  - HEADACHE [None]
  - PYREXIA [None]
